FAERS Safety Report 19610376 (Version 2)
Quarter: 2022Q2

REPORT INFORMATION
  Report Type: Spontaneous
  Country: JP (occurrence: None)
  Receive Date: 20210726
  Receipt Date: 20220608
  Transmission Date: 20220721
  Serious: Yes (Other)
  Sender: FDA-Public Use
  Company Number: 2021A633401

PATIENT
  Age: 79 Year
  Sex: Male

DRUGS (12)
  1. FASENRA [Suspect]
     Active Substance: BENRALIZUMAB
     Indication: Asthma
     Dosage: DOSE UNKNOWN
     Route: 058
  2. FASENRA [Suspect]
     Active Substance: BENRALIZUMAB
     Indication: Asthma
     Dosage: DOSE UNKNOWN
     Route: 058
  3. PREDNISOLONE [Concomitant]
     Active Substance: PREDNISOLONE
     Indication: Asthma
     Dosage: NUMBER OF SEPARATE DOSAGES UNKNOWN7.5MG UNKNOWN
     Route: 048
  4. PREDNISOLONE [Concomitant]
     Active Substance: PREDNISOLONE
     Indication: Asthma
     Dosage: NUMBER OF SEPARATE DOSAGES UNKNOWN5.0MG UNKNOWN
     Route: 048
  5. PREDNISOLONE [Concomitant]
     Active Substance: PREDNISOLONE
     Indication: Asthma
     Dosage: NUMBER OF SEPARATE DOSAGES UNKNOWN3.0MG UNKNOWN
     Route: 048
  6. PREDNISOLONE [Concomitant]
     Active Substance: PREDNISOLONE
     Indication: Asthma
     Dosage: NUMBER OF SEPARATE DOSAGES UNKNOWN2.0MG UNKNOWN
     Route: 048
  7. AMOXICILLIN HYDRATE/POTASSIUM CLAVULANATE [Concomitant]
     Indication: Eosinophilic pneumonia
     Dosage: DOSE UNKNOWN
     Route: 048
  8. VONOPRAZAN FUMARATE [Concomitant]
     Active Substance: VONOPRAZAN FUMARATE
     Dosage: DOSE UNKNOWN
     Route: 048
  9. MONTELUKAST SODIUM [Concomitant]
     Active Substance: MONTELUKAST SODIUM
     Dosage: DOSE UNKNOWN
     Route: 048
  10. LEVOCETIRIZINE HYDROCHLORIDE [Concomitant]
     Active Substance: LEVOCETIRIZINE HYDROCHLORIDE
     Dosage: DOSE UNKNOWN
     Route: 048
  11. DRIED FERROUS SULFATE [Concomitant]
     Dosage: DOSE UNKNOWN
     Route: 048
  12. CLOSTRIDIUM BUTYRICUM SPORES STRAIN M-55 [Concomitant]
     Active Substance: CLOSTRIDIUM BUTYRICUM SPORES STRAIN M-55
     Dosage: DOSE UNKNOWN
     Route: 048

REACTIONS (1)
  - Eosinophilic granulomatosis with polyangiitis [Unknown]
